FAERS Safety Report 6483129-6 (Version None)
Quarter: 2009Q4

REPORT INFORMATION
  Report Type: 
  Country: None (occurrence: None)
  Receive Date: 20091209
  Receipt Date: 20091201
  Transmission Date: 20100525
  Serious: Yes (Hospitalization)
  Sender: FDA-Public Use
  Company Number: US-ROCHE-672129

PATIENT
  Age: 80 Year
  Sex: Female
  Weight: 68.2 kg

DRUGS (1)
  1. XELODA [Suspect]
     Indication: COLON CANCER
     Dosage: OTHER INDICATION: BREAST CANCER, LIVER CANCER
     Route: 048

REACTIONS (3)
  - BALANCE DISORDER [None]
  - BLOOD PRESSURE INCREASED [None]
  - MEMORY IMPAIRMENT [None]
